FAERS Safety Report 15933642 (Version 2)
Quarter: 2019Q1

REPORT INFORMATION
  Report Type: Spontaneous
  Country: NL (occurrence: NL)
  Receive Date: 20190207
  Receipt Date: 20190226
  Transmission Date: 20190417
  Serious: Yes (Hospitalization, Other)
  Sender: FDA-Public Use
  Company Number: PHHY2015NL034430

PATIENT
  Age: 55 Year
  Sex: Female

DRUGS (5)
  1. FOLIC ACID. [Concomitant]
     Active Substance: FOLIC ACID
     Indication: PSORIATIC ARTHROPATHY
     Dosage: 10 MG, QW
     Route: 065
  2. METHOTREXATE. [Suspect]
     Active Substance: METHOTREXATE
     Indication: PSORIATIC ARTHROPATHY
     Dosage: 15 MG, QW
     Route: 065
  3. LITHIUM. [Suspect]
     Active Substance: LITHIUM
     Indication: BIPOLAR DISORDER
     Dosage: 400 MG, QD
     Route: 065
  4. FOLIC ACID. [Concomitant]
     Active Substance: FOLIC ACID
     Dosage: 10 MG,QW
     Route: 065
  5. LITHIUM. [Suspect]
     Active Substance: LITHIUM
     Dosage: 100 MG, QD
     Route: 065

REACTIONS (8)
  - Sepsis [Recovered/Resolved]
  - Haemoglobin decreased [Recovered/Resolved]
  - Bone marrow failure [Recovered/Resolved]
  - Neutropenia [Recovered/Resolved]
  - Nephropathy toxic [Recovered/Resolved]
  - Platelet count decreased [Recovered/Resolved]
  - Pancytopenia [Recovered/Resolved]
  - Epistaxis [Recovered/Resolved]
